FAERS Safety Report 16767485 (Version 1)
Quarter: 2019Q3

REPORT INFORMATION
  Report Type: Spontaneous
  Country: GB (occurrence: GB)
  Receive Date: 20190903
  Receipt Date: 20190903
  Transmission Date: 20191005
  Serious: Yes (Hospitalization)
  Sender: FDA-Public Use
  Company Number: GB-MYLANLABS-2019M1081500

PATIENT
  Age: 39 Year
  Sex: Male

DRUGS (1)
  1. EMTRICITABINE,TENOFOVIR MYLAN [Suspect]
     Active Substance: EMTRICITABINE\TENOFOVIR
     Indication: PROPHYLAXIS AGAINST HIV INFECTION
     Dosage: 1 DOSAGE FORM, QD EMTRICITABINE200MG/TENOFOVIR 245MG
     Route: 048
     Dates: start: 20180125, end: 20180328

REACTIONS (4)
  - Chromaturia [Unknown]
  - Jaundice [Unknown]
  - Pyrexia [Unknown]
  - Hepatitis syphilitic [Recovered/Resolved]

NARRATIVE: CASE EVENT DATE: 20180327
